FAERS Safety Report 18481349 (Version 3)
Quarter: 2021Q3

REPORT INFORMATION
  Report Type: Spontaneous
  Country: US (occurrence: US)
  Receive Date: 20201109
  Receipt Date: 20210708
  Transmission Date: 20211014
  Serious: Yes (Other)
  Sender: FDA-Public Use
  Company Number: US-PURDUE-USA-2020-0173929

PATIENT
  Sex: Female

DRUGS (12)
  1. OXYCODONE HCL TABLETS (RHODES 91?490) [Suspect]
     Active Substance: OXYCODONE HYDROCHLORIDE
     Indication: SARCOIDOSIS
     Dosage: UNKNOWN
     Route: 048
  2. MS IR [Suspect]
     Active Substance: MORPHINE SULFATE
     Indication: SARCOIDOSIS
     Dosage: UNKNOWN
     Route: 065
  3. HYSINGLA ER [Suspect]
     Active Substance: HYDROCODONE BITARTRATE
     Indication: SARCOIDOSIS
     Dosage: UNKNOWN
     Route: 048
  4. HYDROMORPHONE TABLET (RHODES) [Suspect]
     Active Substance: HYDROMORPHONE
     Indication: SARCOIDOSIS
     Dosage: UNKNOWN
     Route: 048
  5. DHC PLUS [Suspect]
     Active Substance: ACETAMINOPHEN\CAFFEINE\DIHYDROCODEINE BITARTRATE
     Indication: SARCOIDOSIS
     Dosage: UNKNOWN
     Route: 065
  6. OXYFAST [Suspect]
     Active Substance: OXYCODONE
     Indication: SARCOIDOSIS
     Dosage: UNKNOWN
     Route: 065
  7. MORPHINE SULFATE (SIMILAR TO NDA 19?516) [Suspect]
     Active Substance: MORPHINE SULFATE
     Indication: PRODUCT USED FOR UNKNOWN INDICATION
     Dosage: UNKNOWN
     Route: 065
  8. TRAMADOL CR TABLETS (RHODES 21?745) [Suspect]
     Active Substance: TRAMADOL
     Indication: SARCOIDOSIS
     Dosage: UNKNOWN
     Route: 065
  9. HYDROCODONE BITARTRATE AND ACETAMINOPHEN [Suspect]
     Active Substance: ACETAMINOPHEN\HYDROCODONE BITARTRATE
     Indication: SARCOIDOSIS
     Dosage: UNKNOWN
     Route: 048
  10. HYDROCODONE BITARTRATE (SIMILAR TO NDA 206627) [Suspect]
     Active Substance: HYDROCODONE BITARTRATE
     Indication: PRODUCT USED FOR UNKNOWN INDICATION
     Dosage: UNKNOWN
     Route: 048
  11. OXYCODONE HYDROCHLORIDE (SIMILAR TO NDA 22?272) [Suspect]
     Active Substance: OXYCODONE HYDROCHLORIDE
     Indication: PRODUCT USED FOR UNKNOWN INDICATION
     Dosage: UNKNOWN
     Route: 048
  12. PALLADONE [Suspect]
     Active Substance: HYDROMORPHONE HYDROCHLORIDE
     Indication: SARCOIDOSIS
     Dosage: UNKNOWN
     Route: 065

REACTIONS (15)
  - Overdose [Unknown]
  - Confusional state [Unknown]
  - Product prescribing error [Unknown]
  - Tremor [Unknown]
  - Insomnia [Unknown]
  - Anxiety [Unknown]
  - Depression [Unknown]
  - Disability [Unknown]
  - Movement disorder [Unknown]
  - Gait disturbance [Unknown]
  - Drug dependence [Unknown]
  - Drug abuse [Unknown]
  - Somnolence [Unknown]
  - Nausea [Unknown]
  - Emotional distress [Unknown]
